FAERS Safety Report 4414667-5 (Version None)
Quarter: 2004Q3

REPORT INFORMATION
  Report Type: 
  Country: None (occurrence: None)
  Receive Date: 20040729
  Receipt Date: 20040716
  Transmission Date: 20050211
  Serious: Yes (Other)
  Sender: FDA-Public Use
  Company Number: US-JNJFOC-20040305944

PATIENT
  Age: 44 Year
  Sex: Female
  Weight: 63.05 kg

DRUGS (2)
  1. REMICADE (INFLIXIMAB, RECOMBINANT) LYOPHILIZED POWDER [Suspect]
     Indication: RHEUMATOID ARTHRITIS
     Dosage: 40 MG/KG, INTRAVENOUS
     Route: 042
     Dates: start: 20040324
  2. METHOTREXATE [Concomitant]

REACTIONS (7)
  - ANGIONEUROTIC OEDEMA [None]
  - ARTHRALGIA [None]
  - HYPOAESTHESIA [None]
  - INFUSION RELATED REACTION [None]
  - PAIN IN EXTREMITY [None]
  - SKIN DISCOLOURATION [None]
  - SWELLING [None]
